FAERS Safety Report 15886659 (Version 1)
Quarter: 2019Q1

REPORT INFORMATION
  Report Type: Spontaneous
  Country: US (occurrence: US)
  Receive Date: 20190129
  Receipt Date: 20190129
  Transmission Date: 20190417
  Serious: No
  Sender: FDA-Public Use
  Company Number: US-BIOGEN-2019BI00685777

PATIENT
  Age: 53 Year
  Sex: Female

DRUGS (25)
  1. CELEBREX [Concomitant]
     Active Substance: CELECOXIB
     Indication: PRODUCT USED FOR UNKNOWN INDICATION
     Route: 065
     Dates: start: 20160613
  2. BUDEPRION XL [Concomitant]
     Active Substance: BUPROPION HYDROCHLORIDE
     Indication: PRODUCT USED FOR UNKNOWN INDICATION
     Route: 065
     Dates: start: 20070810
  3. LYRICA [Concomitant]
     Active Substance: PREGABALIN
     Indication: PRODUCT USED FOR UNKNOWN INDICATION
     Route: 065
     Dates: start: 20171024, end: 20181210
  4. OXYCODON/APAP [Concomitant]
     Indication: PRODUCT USED FOR UNKNOWN INDICATION
     Dosage: 10-325 MG
     Route: 065
     Dates: start: 20171024
  5. DALFAMPRIDINE. [Concomitant]
     Active Substance: DALFAMPRIDINE
     Indication: PRODUCT USED FOR UNKNOWN INDICATION
     Route: 065
  6. VITAMIN D [Concomitant]
     Active Substance: CHOLECALCIFEROL
     Indication: PRODUCT USED FOR UNKNOWN INDICATION
     Route: 065
     Dates: start: 20070810
  7. VITAMIN D [Concomitant]
     Active Substance: CHOLECALCIFEROL
     Route: 065
     Dates: start: 20070810
  8. VITAMIN D [Concomitant]
     Active Substance: CHOLECALCIFEROL
     Route: 065
     Dates: start: 20070810
  9. SOMA [Concomitant]
     Active Substance: CARISOPRODOL
     Indication: PRODUCT USED FOR UNKNOWN INDICATION
     Route: 065
     Dates: start: 20070810
  10. TECFIDERA [Suspect]
     Active Substance: DIMETHYL FUMARATE
     Indication: MULTIPLE SCLEROSIS
     Dosage: MAINTENANCE DOSE
     Route: 048
     Dates: start: 20150918
  11. POTASSIUM [Concomitant]
     Active Substance: POTASSIUM
     Indication: PRODUCT USED FOR UNKNOWN INDICATION
     Route: 065
     Dates: start: 20171024
  12. BACLOFEN. [Concomitant]
     Active Substance: BACLOFEN
     Indication: PRODUCT USED FOR UNKNOWN INDICATION
     Route: 065
     Dates: start: 20070810
  13. VITAMIN D [Concomitant]
     Active Substance: CHOLECALCIFEROL
     Route: 065
     Dates: start: 20070810
  14. ADVIL [Concomitant]
     Active Substance: IBUPROFEN
     Indication: PRODUCT USED FOR UNKNOWN INDICATION
     Route: 065
  15. GABAPENTIN. [Concomitant]
     Active Substance: GABAPENTIN
     Indication: PRODUCT USED FOR UNKNOWN INDICATION
     Route: 065
     Dates: start: 20070810
  16. VITAMIN D [Concomitant]
     Active Substance: CHOLECALCIFEROL
     Route: 065
     Dates: start: 20070810
  17. AMPYRA [Concomitant]
     Active Substance: DALFAMPRIDINE
     Indication: GAIT DISTURBANCE
     Route: 065
     Dates: start: 20130604
  18. FISH OIL [Concomitant]
     Active Substance: FISH OIL
     Indication: PRODUCT USED FOR UNKNOWN INDICATION
     Route: 065
     Dates: start: 20070813
  19. LYRICA [Concomitant]
     Active Substance: PREGABALIN
     Route: 065
     Dates: start: 20171212, end: 20181210
  20. VITAMIN D [Concomitant]
     Active Substance: CHOLECALCIFEROL
     Route: 065
     Dates: start: 20070810
  21. OXYCONTIN [Concomitant]
     Active Substance: OXYCODONE HYDROCHLORIDE
     Indication: PRODUCT USED FOR UNKNOWN INDICATION
     Route: 065
     Dates: start: 20171212
  22. PRISTIQ EXTENDED-RELEASE [Concomitant]
     Active Substance: DESVENLAFAXINE SUCCINATE
     Indication: PRODUCT USED FOR UNKNOWN INDICATION
     Route: 065
     Dates: start: 20070810
  23. WELLBUTRIN [Concomitant]
     Active Substance: BUPROPION HYDROCHLORIDE
     Indication: PRODUCT USED FOR UNKNOWN INDICATION
     Route: 065
     Dates: start: 20081015
  24. OXYCONTIN [Concomitant]
     Active Substance: OXYCODONE HYDROCHLORIDE
     Route: 065
     Dates: start: 20180111
  25. CARISOPRODOL. [Concomitant]
     Active Substance: CARISOPRODOL
     Indication: PRODUCT USED FOR UNKNOWN INDICATION
     Route: 065
     Dates: start: 20171230

REACTIONS (2)
  - Multiple sclerosis relapse [Not Recovered/Not Resolved]
  - Product dose omission [Unknown]

NARRATIVE: CASE EVENT DATE: 201812
